FAERS Safety Report 4877257-6 (Version None)
Quarter: 2006Q1

REPORT INFORMATION
  Report Type: 
  Country: None (occurrence: None)
  Receive Date: 20060111
  Receipt Date: 20060104
  Transmission Date: 20060701
  Serious: Yes (Other)
  Sender: FDA-Public Use
  Company Number: 2006AP00032

PATIENT
  Age: 58 Year
  Sex: Male

DRUGS (4)
  1. XYLOCAINE [Suspect]
     Indication: INFILTRATION ANAESTHESIA
     Route: 065
     Dates: start: 20060104, end: 20060104
  2. XYLOCAINE [Suspect]
     Indication: LOCAL ANAESTHESIA
     Route: 065
     Dates: start: 20060104, end: 20060104
  3. XYLOCAINE [Suspect]
     Route: 061
     Dates: start: 20060104, end: 20060104
  4. XYLOCAINE [Suspect]
     Route: 061
     Dates: start: 20060104, end: 20060104

REACTIONS (1)
  - LOSS OF CONSCIOUSNESS [None]
